FAERS Safety Report 8937243 (Version 2)
Quarter: 2013Q3

REPORT INFORMATION
  Report Type: Spontaneous
  Country: JP (occurrence: JP)
  Receive Date: 20121203
  Receipt Date: 20130828
  Transmission Date: 20140515
  Serious: Yes (Other)
  Sender: FDA-Public Use
  Company Number: PHHY2012JP109995

PATIENT
  Age: 72 Year
  Sex: Female

DRUGS (1)
  1. RIVASTIGMIN [Suspect]
     Indication: DEMENTIA ALZHEIMER^S TYPE
     Dosage: 18 MG, DAILY
     Route: 062
     Dates: start: 20120123, end: 20121120

REACTIONS (1)
  - Blood cholinesterase decreased [Unknown]
